FAERS Safety Report 9742365 (Version 1)
Quarter: 2013Q4

REPORT INFORMATION
  Report Type: Spontaneous
  Country: US (occurrence: US)
  Receive Date: 20131210
  Receipt Date: 20131210
  Transmission Date: 20140711
  Serious: Yes (Other)
  Sender: FDA-Public Use
  Company Number: US-BAYER-2013-148375

PATIENT
  Age: 41 Year
  Sex: Female

DRUGS (1)
  1. MIRENA [Suspect]
     Dosage: 20 MCG/24HR, CONT
     Route: 015
     Dates: start: 20060317, end: 20090925

REACTIONS (11)
  - Uterine perforation [None]
  - Vaginal haemorrhage [None]
  - Genital haemorrhage [None]
  - Abdominal pain lower [None]
  - Nausea [None]
  - Vomiting [None]
  - Dysmenorrhoea [None]
  - Pelvic pain [None]
  - Injury [None]
  - Pain [None]
  - Emotional distress [None]
